FAERS Safety Report 20373392 (Version 1)
Quarter: 2022Q1

REPORT INFORMATION
  Report Type: Spontaneous
  Country: CA (occurrence: CA)
  Receive Date: 20220125
  Receipt Date: 20220125
  Transmission Date: 20220423
  Serious: Yes (Hospitalization, Other)
  Sender: FDA-Public Use
  Company Number: CA-TEVA-2022-CA-2000728

PATIENT
  Age: 86 Year
  Sex: Female

DRUGS (31)
  1. CALCIUM [Suspect]
     Active Substance: CALCIUM
     Indication: Product used for unknown indication
     Dosage: 1000 MILLIGRAM DAILY;
     Route: 065
  2. CALCIUM [Suspect]
     Active Substance: CALCIUM
     Dosage: 1000 MILLIGRAM DAILY;
     Route: 065
  3. CANDESARTAN [Suspect]
     Active Substance: CANDESARTAN
     Indication: Product used for unknown indication
     Dosage: 8 MILLIGRAM DAILY;
     Route: 048
  4. CANDESARTAN [Suspect]
     Active Substance: CANDESARTAN
     Dosage: 8 MILLIGRAM DAILY;
     Route: 048
  5. LACTULOSE [Suspect]
     Active Substance: LACTULOSE
     Indication: Product used for unknown indication
     Route: 065
  6. LACTULOSE [Suspect]
     Active Substance: LACTULOSE
     Route: 065
  7. QUETIAPINE [Suspect]
     Active Substance: QUETIAPINE
     Indication: Product used for unknown indication
     Route: 048
  8. QUETIAPINE [Suspect]
     Active Substance: QUETIAPINE
     Route: 048
  9. ADVAIR HFA [Suspect]
     Active Substance: FLUTICASONE PROPIONATE\SALMETEROL XINAFOATE
     Indication: Product used for unknown indication
     Route: 055
  10. ADVAIR HFA [Suspect]
     Active Substance: FLUTICASONE PROPIONATE\SALMETEROL XINAFOATE
     Dosage: 4 DOSAGE FORMS DAILY;
     Route: 055
  11. DEXILANT [Suspect]
     Active Substance: DEXLANSOPRAZOLE
     Indication: Product used for unknown indication
     Dosage: 30 MILLIGRAM DAILY;
     Route: 065
  12. DEXILANT [Suspect]
     Active Substance: DEXLANSOPRAZOLE
     Dosage: 30 MILLIGRAM DAILY;
     Route: 065
  13. FERROUS SULFATE ANHYDROUS [Suspect]
     Active Substance: FERROUS SULFATE ANHYDROUS
     Indication: Product used for unknown indication
     Dosage: 300 MILLIGRAM DAILY;
     Route: 065
  14. FERROUS SULFATE ANHYDROUS [Suspect]
     Active Substance: FERROUS SULFATE ANHYDROUS
     Dosage: 300 MILLIGRAM DAILY;
     Route: 065
  15. K-DUR [Suspect]
     Active Substance: POTASSIUM CHLORIDE
     Indication: Product used for unknown indication
     Dosage: 20 MILLIEQUIVALENTS DAILY;
     Route: 065
  16. K-DUR [Suspect]
     Active Substance: POTASSIUM CHLORIDE
     Dosage: 20 MILLIEQUIVALENTS DAILY;
     Route: 065
  17. LASIX [Suspect]
     Active Substance: FUROSEMIDE
     Indication: Product used for unknown indication
     Dosage: 20 MILLIGRAM DAILY;
     Route: 065
  18. LASIX [Suspect]
     Active Substance: FUROSEMIDE
     Dosage: 20 MILLIGRAM DAILY;
     Route: 065
  19. MEPOLIZUMAB [Suspect]
     Active Substance: MEPOLIZUMAB
     Indication: Asthma
     Route: 065
  20. MEPOLIZUMAB [Suspect]
     Active Substance: MEPOLIZUMAB
     Route: 065
  21. METOCLOPRAMIDE [Suspect]
     Active Substance: METOCLOPRAMIDE
     Indication: Product used for unknown indication
     Route: 065
  22. METOCLOPRAMIDE [Suspect]
     Active Substance: METOCLOPRAMIDE
     Route: 065
  23. NASONEX [Suspect]
     Active Substance: MOMETASONE FUROATE
     Indication: Product used for unknown indication
     Dosage: 2 DOSAGE FORMS DAILY;
     Route: 065
  24. NASONEX [Suspect]
     Active Substance: MOMETASONE FUROATE
     Dosage: 2 DOSAGE FORMS DAILY;
     Route: 065
  25. NASONEX [Suspect]
     Active Substance: MOMETASONE FUROATE
     Route: 065
  26. NASONEX [Suspect]
     Active Substance: MOMETASONE FUROATE
     Route: 065
  27. TYLENOL [Suspect]
     Active Substance: ACETAMINOPHEN
     Indication: Product used for unknown indication
     Route: 065
  28. THEOPHYLLINE [Suspect]
     Active Substance: THEOPHYLLINE
     Indication: Product used for unknown indication
     Dosage: 400 MILLIGRAM DAILY;
     Route: 065
  29. UNIPHYL [Suspect]
     Active Substance: THEOPHYLLINE ANHYDROUS
     Indication: Product used for unknown indication
     Dosage: 400 MILLIGRAM DAILY;
     Route: 065
  30. VENTOLIN [Suspect]
     Active Substance: ALBUTEROL SULFATE
     Indication: Product used for unknown indication
     Dosage: 2 DOSAGE FORMS DAILY;
     Route: 055
  31. VENTOLIN [Suspect]
     Active Substance: ALBUTEROL SULFATE
     Route: 055

REACTIONS (15)
  - Accident [Recovered/Resolved]
  - Asthma [Recovered/Resolved]
  - Cough [Recovered/Resolved]
  - Dyspnoea [Recovered/Resolved]
  - Fall [Recovered/Resolved]
  - Flail chest [Recovered/Resolved]
  - Loss of personal independence in daily activities [Recovered/Resolved]
  - Lower limb fracture [Recovered/Resolved]
  - Lung perforation [Recovered/Resolved]
  - Pneumonia [Recovered/Resolved]
  - Rhinorrhoea [Recovered/Resolved]
  - Rib fracture [Recovered/Resolved]
  - Sputum discoloured [Recovered/Resolved]
  - Thoracic operation [Recovered/Resolved]
  - Wheezing [Recovered/Resolved]
